FAERS Safety Report 26183447 (Version 1)
Quarter: 2025Q4

REPORT INFORMATION
  Report Type: Spontaneous
  Country: US (occurrence: US)
  Receive Date: 20251221
  Receipt Date: 20251221
  Transmission Date: 20260118
  Serious: No
  Sender: ACCORD
  Company Number: US-COHERUS BIOSCIENCES, INC-2025-COH-US000206

PATIENT
  Sex: Male

DRUGS (1)
  1. PEGFILGRASTIM-CBQV [Suspect]
     Active Substance: PEGFILGRASTIM-CBQV
     Indication: Product used for unknown indication
     Dosage: 6 MG
     Route: 058

REACTIONS (3)
  - Malaise [Unknown]
  - Abdominal pain upper [Unknown]
  - Device use error [Unknown]

NARRATIVE: CASE EVENT DATE: 20250312
